FAERS Safety Report 12919018 (Version 2)
Quarter: 2017Q3

REPORT INFORMATION
  Report Type: Spontaneous
  Country: FR (occurrence: FR)
  Receive Date: 20161108
  Receipt Date: 20170804
  Transmission Date: 20171127
  Serious: Yes (Hospitalization)
  Sender: FDA-Public Use
  Company Number: FR-ZYDUS-012628

PATIENT
  Age: 78 Year
  Sex: Male

DRUGS (5)
  1. ALPHA-AMYLASE  SWINE PANCREAS [Suspect]
     Active Substance: PANCRELIPASE AMYLASE
     Indication: TONSILLITIS
     Route: 048
     Dates: start: 20160927, end: 20161003
  2. AMBROXOL [Suspect]
     Active Substance: AMBROXOL
     Indication: TONSILLITIS
     Route: 065
     Dates: start: 20160927, end: 20161003
  3. TAMSULOSIN/TAMSULOSIN HYDROCHLORIDE [Suspect]
     Active Substance: TAMSULOSIN HYDROCHLORIDE
     Indication: PRODUCT USED FOR UNKNOWN INDICATION
     Route: 048
     Dates: start: 20160927, end: 20161003
  4. AMOXICILLIN. [Suspect]
     Active Substance: AMOXICILLIN
     Indication: TONSILLITIS
     Route: 048
     Dates: start: 20160927, end: 20161002
  5. ACETYLCYSTEINE/BENZALKONIUM CHLORIDE/TUAMINOHEPTANE [Suspect]
     Active Substance: ACETYLCYSTEINE\BENZALKONIUM CHLORIDE\TUAMINOHEPTANE
     Indication: TONSILLITIS
     Route: 065
     Dates: start: 20160927, end: 20161003

REACTIONS (13)
  - Rash maculo-papular [Recovered/Resolved]
  - Normocytic anaemia [None]
  - Toxic skin eruption [None]
  - Prostatitis [None]
  - Blood pressure systolic increased [None]
  - Paraesthesia [None]
  - Anaphylactic reaction [None]
  - Hypotension [None]
  - Pruritus [Recovered/Resolved]
  - Headache [None]
  - Sense of oppression [None]
  - Erythema [None]
  - Hyperleukocytosis [None]

NARRATIVE: CASE EVENT DATE: 20160929
